FAERS Safety Report 8587734 (Version 4)
Quarter: 2012Q4

REPORT INFORMATION
  Report Type: 
  Country: DK (occurrence: DK)
  Receive Date: 20120531
  Receipt Date: 20121025
  Transmission Date: 20130627
  Serious: Yes (Disabling, Other)
  Sender: FDA-Public Use
  Company Number: DK-PFIZER INC-2012129022

PATIENT
  Sex: Male

DRUGS (11)
  1. CORDARONE [Suspect]
     Indication: TACHYARRHYTHMIA
     Dosage: 400 mg, 3x/day
     Route: 048
     Dates: start: 20110110, end: 20110117
  2. CORDARONE [Suspect]
     Dosage: 200 mg, 1x/day
     Route: 048
     Dates: start: 20110117, end: 20111122
  3. DIGOXIN [Concomitant]
     Dosage: UNK
  4. SPIRIVA [Concomitant]
     Dosage: UNK
  5. MAREVAN [Concomitant]
     Dosage: UNK
  6. FURIX [Concomitant]
     Dosage: UNK
  7. TEGRETOL [Concomitant]
     Dosage: UNK
  8. LOSARTAN [Concomitant]
     Dosage: UNK
  9. ONBREZ BREEZHALER [Concomitant]
     Dosage: UNK
  10. SINGULAIR [Concomitant]
     Dosage: UNK
  11. AERIUS [Concomitant]
     Dosage: UNK

REACTIONS (4)
  - Polyneuropathy [Recovering/Resolving]
  - Neuropathy peripheral [Not Recovered/Not Resolved]
  - Neuralgia [Not Recovered/Not Resolved]
  - Myxoedema [Unknown]
